FAERS Safety Report 5520685-6 (Version None)
Quarter: 2007Q4

REPORT INFORMATION
  Report Type: 
  Country: None (occurrence: None)
  Receive Date: 20071119
  Receipt Date: 20071105
  Transmission Date: 20080405
  Serious: Yes (Hospitalization, Other)
  Sender: FDA-Public Use
  Company Number: US-PFIZER INC-2007094008

PATIENT
  Sex: Male
  Weight: 52 kg

DRUGS (18)
  1. CHANTIX [Suspect]
     Indication: SMOKING CESSATION THERAPY
  2. ANTIBIOTICS [Concomitant]
  3. ANTIBIOTICS [Concomitant]
  4. ULTRAM [Concomitant]
  5. ULTRAM [Concomitant]
  6. ALL OTHER THERAPEUTIC PRODUCTS [Concomitant]
  7. ALL OTHER THERAPEUTIC PRODUCTS [Concomitant]
  8. TYLENOL [Concomitant]
  9. TYLENOL [Concomitant]
  10. IBUPROFEN TABLETS [Concomitant]
  11. IBUPROFEN TABLETS [Concomitant]
  12. MORPHINE [Concomitant]
  13. MORPHINE [Concomitant]
  14. HEPARIN [Concomitant]
  15. HEPARIN [Concomitant]
  16. ACETYLSALICYLIC ACID SRT [Concomitant]
  17. ACETYLSALICYLIC ACID SRT [Concomitant]
  18. ALBUTEROL [Concomitant]
     Route: 055

REACTIONS (11)
  - ABDOMINAL OPERATION [None]
  - AMNESIA [None]
  - DYSGEUSIA [None]
  - FALL [None]
  - HEADACHE [None]
  - INTESTINAL PERFORATION [None]
  - INTESTINAL STOMA [None]
  - JOINT DISLOCATION [None]
  - SEPSIS [None]
  - VERTIGO [None]
  - WEIGHT DECREASED [None]
